FAERS Safety Report 19233750 (Version 2)
Quarter: 2021Q2

REPORT INFORMATION
  Report Type: Spontaneous
  Country: US (occurrence: US)
  Receive Date: 20210507
  Receipt Date: 20210608
  Transmission Date: 20210717
  Serious: No
  Sender: FDA-Public Use
  Company Number: US-MYLANLABS-2021M1025793

PATIENT
  Sex: Female
  Weight: 113.37 kg

DRUGS (1)
  1. SEMGLEE [Suspect]
     Active Substance: INSULIN GLARGINE
     Indication: TYPE 2 DIABETES MELLITUS
     Dosage: 62 UNITS/ML, 2 TIMES A DAY
     Route: 058

REACTIONS (4)
  - Injection site atrophy [Not Recovered/Not Resolved]
  - Device issue [Not Recovered/Not Resolved]
  - Weight decreased [Not Recovered/Not Resolved]
  - Needle issue [Not Recovered/Not Resolved]
